FAERS Safety Report 12453052 (Version 1)
Quarter: 2016Q2

REPORT INFORMATION
  Report Type: Spontaneous
  Country: US (occurrence: US)
  Receive Date: 20160609
  Receipt Date: 20160609
  Transmission Date: 20160815
  Serious: Yes (Other)
  Sender: FDA-Public Use
  Company Number: US-CELGENEUS-USA-2015061844

PATIENT

DRUGS (4)
  1. DEXAMETHASONE. [Suspect]
     Active Substance: DEXAMETHASONE
     Indication: PLASMA CELL MYELOMA
     Route: 048
  2. POMALYST [Suspect]
     Active Substance: POMALIDOMIDE
     Indication: PLASMA CELL MYELOMA
     Dosage: 4 MILLIGRAM
     Route: 048
  3. ACY-1215 [Suspect]
     Active Substance: RICOLINOSTAT
     Route: 048
  4. ACY-1215 [Suspect]
     Active Substance: RICOLINOSTAT
     Indication: PLASMA CELL MYELOMA
     Route: 048

REACTIONS (19)
  - Neutropenia [Unknown]
  - Pneumonia [Unknown]
  - Bradycardia [Unknown]
  - Dehydration [Unknown]
  - Fatigue [Unknown]
  - Dyspnoea [Unknown]
  - Febrile neutropenia [Unknown]
  - Diarrhoea [Unknown]
  - Thrombocytopenia [Unknown]
  - Upper respiratory tract infection [Unknown]
  - Bronchitis [Unknown]
  - Constipation [Unknown]
  - Anaemia [Unknown]
  - Renal failure [Unknown]
  - Hypoxia [Unknown]
  - Cardiac failure chronic [Unknown]
  - General physical health deterioration [Unknown]
  - Hypertension [Unknown]
  - Plasma cell myeloma [Unknown]
